FAERS Safety Report 21015676 (Version 1)
Quarter: 2022Q2

REPORT INFORMATION
  Report Type: Spontaneous
  Country: CN (occurrence: CN)
  Receive Date: 20220628
  Receipt Date: 20220628
  Transmission Date: 20220720
  Serious: Yes (Other)
  Sender: FDA-Public Use
  Company Number: CN-009507513-2206CHN006370

PATIENT
  Age: 56 Year
  Sex: Male

DRUGS (3)
  1. PEMBROLIZUMAB [Suspect]
     Active Substance: PEMBROLIZUMAB
     Indication: Lung squamous cell carcinoma stage III
     Dosage: THE SIXTH CYCLE
     Dates: start: 20210116
  2. PEMBROLIZUMAB [Suspect]
     Active Substance: PEMBROLIZUMAB
     Dosage: THE SEVENTH CYCLE
     Dates: start: 20210401
  3. PEMBROLIZUMAB [Suspect]
     Active Substance: PEMBROLIZUMAB
     Dosage: THE EIGHTH CIRCLE
     Dates: start: 20210428

REACTIONS (1)
  - Immune-mediated cystitis [Recovering/Resolving]

NARRATIVE: CASE EVENT DATE: 20210125
